FAERS Safety Report 19612382 (Version 3)
Quarter: 2022Q1

REPORT INFORMATION
  Report Type: Report from Study
  Country: CA (occurrence: CA)
  Receive Date: 20210726
  Receipt Date: 20220131
  Transmission Date: 20220424
  Serious: Yes (Other)
  Sender: FDA-Public Use
  Company Number: CA-ABBVIE-21K-028-4005931-00

PATIENT
  Sex: Female

DRUGS (2)
  1. RINVOQ [Suspect]
     Active Substance: UPADACITINIB
     Indication: Rheumatoid arthritis
     Route: 048
     Dates: start: 20200916
  2. RINVOQ [Suspect]
     Active Substance: UPADACITINIB
     Route: 048
     Dates: start: 20211111

REACTIONS (3)
  - Carpal tunnel syndrome [Unknown]
  - Trigger finger [Unknown]
  - Arthropathy [Unknown]

NARRATIVE: CASE EVENT DATE: 20200101
